FAERS Safety Report 6349756-1 (Version None)
Quarter: 2009Q3

REPORT INFORMATION
  Report Type: 
  Country: None (occurrence: None)
  Receive Date: 20090911
  Receipt Date: 20090909
  Transmission Date: 20100115
  Serious: Yes (Death, Other)
  Sender: FDA-Public Use
  Company Number: PHHY2009DE38513

PATIENT
  Age: 26 Year
  Sex: Male

DRUGS (2)
  1. CARBAMAZEPINE [Suspect]
     Indication: BIPOLAR DISORDER
  2. HEPARIN [Concomitant]

REACTIONS (19)
  - BLISTER [None]
  - CARDIAC FAILURE ACUTE [None]
  - COAGULOPATHY [None]
  - DEBRIDEMENT [None]
  - DIALYSIS [None]
  - EJECTION FRACTION DECREASED [None]
  - FASCIOTOMY [None]
  - ILIAC ARTERY OCCLUSION [None]
  - PAIN IN EXTREMITY [None]
  - PERIPHERAL ARTERIAL OCCLUSIVE DISEASE [None]
  - PERIPHERAL COLDNESS [None]
  - PULMONARY EMBOLISM [None]
  - RENAL FAILURE [None]
  - RESUSCITATION [None]
  - SKIN EXFOLIATION [None]
  - THROMBECTOMY [None]
  - THROMBOCYTOPENIA [None]
  - TOXIC EPIDERMAL NECROLYSIS [None]
  - TRANSFUSION [None]
